FAERS Safety Report 25551755 (Version 1)
Quarter: 2025Q3

REPORT INFORMATION
  Report Type: Spontaneous
  Country: US (occurrence: None)
  Receive Date: 20250714
  Receipt Date: 20250714
  Transmission Date: 20251021
  Serious: Yes (Other)
  Sender: FDA-CTU
  Company Number: None

PATIENT
  Age: 66 Year
  Sex: Female
  Weight: 83.25 kg

DRUGS (6)
  1. XYZAL [Suspect]
     Active Substance: LEVOCETIRIZINE DIHYDROCHLORIDE
     Indication: Seasonal allergy
     Dosage: 1 TABLET DAILY ORAL
     Route: 048
     Dates: start: 20250501, end: 20250701
  2. QUERCETIN [Concomitant]
     Active Substance: QUERCETIN
  3. CURCUMIN [Concomitant]
     Active Substance: CURCUMIN
  4. VITAMIN D NOS [Concomitant]
     Active Substance: CHOLECALCIFEROL\ERGOCALCIFEROL
  5. b12 [Concomitant]
  6. VITAMIN C [Concomitant]
     Active Substance: ASCORBIC ACID

REACTIONS (3)
  - Pruritus [None]
  - Withdrawal syndrome [None]
  - Insomnia [None]

NARRATIVE: CASE EVENT DATE: 20250701
